FAERS Safety Report 16478135 (Version 1)
Quarter: 2019Q2

REPORT INFORMATION
  Report Type: Report from Study
  Country: US (occurrence: US)
  Receive Date: 20190626
  Receipt Date: 20190626
  Transmission Date: 20190711
  Serious: Yes (Death, Other)
  Sender: FDA-Public Use
  Company Number: US-GLAXOSMITHKLINE-US2019GSK113346

PATIENT
  Age: 55 Year
  Sex: Male

DRUGS (1)
  1. ACYCLOVIR. [Suspect]
     Active Substance: ACYCLOVIR
     Indication: ANTIVIRAL PROPHYLAXIS
     Dosage: 400 MG, BID

REACTIONS (5)
  - Neutropenia [Unknown]
  - Herpes simplex [Fatal]
  - Thrombocytopenia [Unknown]
  - Herpes simplex meningoencephalitis [Fatal]
  - Drug ineffective [Unknown]
